FAERS Safety Report 20296666 (Version 1)
Quarter: 2022Q1

REPORT INFORMATION
  Report Type: Spontaneous
  Country: US (occurrence: US)
  Receive Date: 20220105
  Receipt Date: 20220105
  Transmission Date: 20220423
  Serious: No
  Sender: FDA-Public Use
  Company Number: US-AMGEN-USASP2021205328

PATIENT

DRUGS (1)
  1. PROLIA [Suspect]
     Active Substance: DENOSUMAB
     Indication: Product used for unknown indication
     Dosage: UNK
     Route: 065

REACTIONS (10)
  - Blood urea increased [Unknown]
  - Blood creatinine increased [Unknown]
  - Tinnitus [Unknown]
  - Sinus disorder [Unknown]
  - Dehydration [Unknown]
  - Glomerular filtration rate abnormal [Unknown]
  - Impaired driving ability [Unknown]
  - Dizziness [Unknown]
  - Alopecia [Unknown]
  - Urticaria [Unknown]
